FAERS Safety Report 16221399 (Version 2)
Quarter: 2019Q4

REPORT INFORMATION
  Report Type: Report from Study
  Country: IE (occurrence: IE)
  Receive Date: 20190422
  Receipt Date: 20191114
  Transmission Date: 20200122
  Serious: Yes (Hospitalization, Other)
  Sender: FDA-Public Use
  Company Number: IE-BRISTOL-MYERS SQUIBB COMPANY-BMS-2018-111574

PATIENT
  Sex: Female

DRUGS (1)
  1. NIVOLUMAB [Suspect]
     Active Substance: NIVOLUMAB
     Indication: METASTATIC RENAL CELL CARCINOMA
     Dosage: UNK, Q4WK
     Route: 065
     Dates: start: 20181031

REACTIONS (5)
  - Pathological fracture [Recovered/Resolved]
  - Joint stiffness [Recovered/Resolved]
  - Pruritus [Recovered/Resolved]
  - Night sweats [Not Recovered/Not Resolved]
  - Fatigue [Not Recovered/Not Resolved]
